FAERS Safety Report 13138923 (Version 2)
Quarter: 2017Q1

REPORT INFORMATION
  Report Type: Spontaneous
  Country: US (occurrence: US)
  Receive Date: 20170123
  Receipt Date: 20170206
  Transmission Date: 20170428
  Serious: No
  Sender: FDA-Public Use
  Company Number: US-PFIZER INC-2017028268

PATIENT
  Age: 63 Year
  Sex: Male
  Weight: 102 kg

DRUGS (2)
  1. ADVIL [Suspect]
     Active Substance: IBUPROFEN
     Indication: MYALGIA
     Dosage: 400 MG, 1X/DAY
     Route: 048
     Dates: end: 20170119
  2. ASPIRIN. [Concomitant]
     Active Substance: ASPIRIN
     Indication: MYALGIA
     Dosage: 325 MG, AS NEEDED, ^MAYBE ONCE A WEEK OR EVERY 2 TO 3 DAYS AS NEEDED^
     Route: 048

REACTIONS (1)
  - Oral discomfort [Recovered/Resolved]

NARRATIVE: CASE EVENT DATE: 201701
